FAERS Safety Report 23455812 (Version 2)
Quarter: 2025Q4

REPORT INFORMATION
  Report Type: Spontaneous
  Country: US (occurrence: US)
  Receive Date: 20240130
  Receipt Date: 20251226
  Transmission Date: 20260118
  Serious: No
  Sender: PADAGIS
  Company Number: US-PADAGIS-2024PAD00034

PATIENT

DRUGS (1)
  1. MUPIROCIN [Suspect]
     Active Substance: MUPIROCIN
     Indication: Rhinitis
     Dosage: UNK, BID
     Route: 045
     Dates: start: 20240105

REACTIONS (8)
  - Throat irritation [Unknown]
  - Dysgeusia [Unknown]
  - Oropharyngeal discomfort [Unknown]
  - Application site pain [Unknown]
  - Condition aggravated [Unknown]
  - Drug ineffective for unapproved indication [Unknown]
  - Incorrect route of product administration [Unknown]
  - Product prescribing issue [Unknown]

NARRATIVE: CASE EVENT DATE: 20240101
